FAERS Safety Report 7242092-0 (Version None)
Quarter: 2011Q1

REPORT INFORMATION
  Report Type: 
  Country: None (occurrence: None)
  Receive Date: 20110124
  Receipt Date: 20110121
  Transmission Date: 20110831
  Serious: Yes (Other)
  Sender: FDA-Public Use
  Company Number: US-PFIZER INC-2011015687

PATIENT
  Age: 64 Year
  Sex: Female
  Weight: 64.399 kg

DRUGS (7)
  1. TIKOSYN [Suspect]
     Indication: ATRIAL FIBRILLATION
     Dosage: 0.125 MG, 2X/DAY
     Route: 048
     Dates: start: 20080101
  2. COZAAR [Concomitant]
     Dosage: UNK
  3. WARFARIN [Concomitant]
     Dosage: UNK
  4. ACETYLSALICYLIC ACID [Concomitant]
     Dosage: UNK, AS NEEDED
  5. DILTIAZEM [Concomitant]
     Dosage: UNK
  6. TOPROL-XL [Concomitant]
     Dosage: UNK
  7. BISACODYL [Concomitant]
     Dosage: UNK

REACTIONS (2)
  - COLONOSCOPY [None]
  - LIVER FUNCTION TEST ABNORMAL [None]
